FAERS Safety Report 21777747 (Version 2)
Quarter: 2023Q1

REPORT INFORMATION
  Report Type: Other
  Country: CA (occurrence: CA)
  Receive Date: 20221226
  Receipt Date: 20230127
  Transmission Date: 20230418
  Serious: Yes (Hospitalization, Other)
  Sender: FDA-Public Use
  Company Number: CA-APOTEX-2022AP017115

PATIENT
  Sex: Female

DRUGS (1)
  1. LENALIDOMIDE [Suspect]
     Active Substance: LENALIDOMIDE
     Indication: Plasma cell myeloma
     Dosage: 10 MILLIGRAM, QD
     Route: 048
     Dates: start: 20220401, end: 2022

REACTIONS (3)
  - Hospitalisation [Unknown]
  - Acute lymphocytic leukaemia [Unknown]
  - B-cell type acute leukaemia [Unknown]

NARRATIVE: CASE EVENT DATE: 20220101
